FAERS Safety Report 4470679-7 (Version None)
Quarter: 2004Q4

REPORT INFORMATION
  Report Type: 
  Country: None (occurrence: None)
  Receive Date: 20041006
  Receipt Date: 20041006
  Transmission Date: 20050328
  Serious: Yes (Death)
  Sender: FDA-Public Use
  Company Number: None

PATIENT
  Age: 75 Year
  Sex: Male
  Weight: 91.173 kg

DRUGS (2)
  1. PEMETREXED 500 MG LILLY [Suspect]
     Indication: MESOTHELIOMA MALIGNANT
     Dosage: 1, 000 MG DAY 8 Q 21 D IV
     Route: 042
     Dates: start: 20040915, end: 20040915
  2. GEMCITABINE 200 MG LILLY [Suspect]
     Indication: MESOTHELIOMA MALIGNANT
     Dosage: 2, 500 MG DAY 1, 8, IV
     Route: 042
     Dates: start: 20040908, end: 20040915

REACTIONS (5)
  - FEBRILE NEUTROPENIA [None]
  - PANCYTOPENIA [None]
  - PNEUMONIA ASPIRATION [None]
  - RENAL FAILURE [None]
  - SEPTIC SHOCK [None]
